FAERS Safety Report 24394230 (Version 2)
Quarter: 2024Q4

REPORT INFORMATION
  Report Type: Spontaneous
  Country: US (occurrence: US)
  Receive Date: 20241004
  Receipt Date: 20241004
  Transmission Date: 20250114
  Serious: No
  Sender: SANDOZ
  Company Number: US-SANDOZ-SDZ2024US083818

PATIENT
  Sex: Female

DRUGS (1)
  1. GLATOPA [Suspect]
     Active Substance: GLATIRAMER ACETATE
     Indication: Product used for unknown indication
     Dosage: UNK, QD
     Route: 065

REACTIONS (3)
  - Exposure via skin contact [Unknown]
  - Device issue [Unknown]
  - Device mechanical issue [Unknown]
